FAERS Safety Report 22114738 (Version 1)
Quarter: 2023Q1

REPORT INFORMATION
  Report Type: Spontaneous
  Country: US (occurrence: None)
  Receive Date: 20230317
  Receipt Date: 20230317
  Transmission Date: 20230418
  Serious: No
  Sender: FDA-Public Use
  Company Number: None

PATIENT
  Age: 39 Year
  Sex: Female
  Weight: 91.63 kg

DRUGS (8)
  1. IBRANCE [Suspect]
     Active Substance: PALBOCICLIB
     Indication: Breast cancer female
     Dosage: FREQUENCY : DAILY;?
     Route: 048
     Dates: start: 20220707, end: 20230317
  2. GABAPENTIN [Concomitant]
  3. MELATONIN [Concomitant]
  4. OIL ENERGY [Concomitant]
  5. OILY HAIR SKIN NAILS [Concomitant]
  6. OILY MULTIVITAMIN [Concomitant]
  7. OXYCODONE [Concomitant]
  8. ZOFRAN [Concomitant]

REACTIONS (2)
  - Disease progression [None]
  - Breast cancer female [None]
